FAERS Safety Report 19272850 (Version 4)
Quarter: 2021Q3

REPORT INFORMATION
  Report Type: Spontaneous
  Country: US (occurrence: US)
  Receive Date: 20210519
  Receipt Date: 20210712
  Transmission Date: 20211014
  Serious: Yes (Hospitalization, Other)
  Sender: FDA-Public Use
  Company Number: US-GLAXOSMITHKLINE-US2021102745

PATIENT
  Sex: Female

DRUGS (3)
  1. BENLYSTA [Suspect]
     Active Substance: BELIMUMAB
     Indication: SYSTEMIC LUPUS ERYTHEMATOSUS
     Dosage: 200 MG, Z, EVERY 7 DAYS
  2. BENLYSTA [Suspect]
     Active Substance: BELIMUMAB
     Indication: SYSTEMIC LUPUS ERYTHEMATOSUS
     Dosage: UNK
  3. BENLYSTA [Suspect]
     Active Substance: BELIMUMAB

REACTIONS (5)
  - Injection site extravasation [Unknown]
  - Systemic lupus erythematosus [Unknown]
  - Product complaint [Unknown]
  - Injection site haemorrhage [Unknown]
  - Exposure via skin contact [Unknown]
